FAERS Safety Report 22299489 (Version 1)
Quarter: 2023Q2

REPORT INFORMATION
  Report Type: Spontaneous
  Country: US (occurrence: None)
  Receive Date: 20230508
  Receipt Date: 20230508
  Transmission Date: 20230722
  Serious: Yes (Death)
  Sender: FDA-Public Use
  Company Number: None

PATIENT
  Sex: Male

DRUGS (6)
  1. IMATINIB MESYLATE [Suspect]
     Active Substance: IMATINIB MESYLATE
     Indication: Splenomegaly
     Dosage: FREQUENCY : DAILY;?
     Route: 048
     Dates: start: 20230117, end: 20230322
  2. ALLOPURINOL [Concomitant]
     Active Substance: ALLOPURINOL
  3. HYDROXYUREA [Concomitant]
     Active Substance: HYDROXYUREA
  4. MELATONIN [Concomitant]
  5. MULTIPLE VIT [Concomitant]
  6. NITROSTAT SUB [Concomitant]

REACTIONS (1)
  - Death [None]
